FAERS Safety Report 6569900-0 (Version None)
Quarter: 2010Q1

REPORT INFORMATION
  Report Type: 
  Country: None (occurrence: None)
  Receive Date: 20100204
  Receipt Date: 20100127
  Transmission Date: 20100710
  Serious: Yes (Other)
  Sender: FDA-Public Use
  Company Number: PHHY2010DE04973

PATIENT
  Sex: Female
  Weight: 111 kg

DRUGS (2)
  1. CGS 20267 T30748+ [Suspect]
     Indication: BREAST CANCER
     Dosage: 2.5 MG, DAILY
     Route: 048
     Dates: start: 20090728
  2. RAMIPRIL [Concomitant]
     Dosage: UNK
     Dates: start: 20050101

REACTIONS (1)
  - ARRHYTHMIA [None]
